FAERS Safety Report 9676133 (Version 1)
Quarter: 2013Q4

REPORT INFORMATION
  Report Type: Spontaneous
  Country: DK (occurrence: DK)
  Receive Date: 20131107
  Receipt Date: 20131107
  Transmission Date: 20140711
  Serious: Yes (Hospitalization)
  Sender: FDA-Public Use
  Company Number: DK-WATSON-2013-20214

PATIENT
  Age: 71 Year
  Sex: Female

DRUGS (2)
  1. ALENDRONATE [Suspect]
     Indication: OSTEOPOROSIS
     Dosage: 70 MG, 1/WEEK
     Route: 048
     Dates: start: 2007, end: 2008
  2. ZOMETA [Suspect]
     Indication: METASTASES TO BONE
     Dosage: UNK; CONCENTRATION: 4MG/100ML
     Route: 042
     Dates: start: 20100302

REACTIONS (2)
  - Osteonecrosis of jaw [Not Recovered/Not Resolved]
  - Jaw operation [Unknown]
